FAERS Safety Report 15601106 (Version 1)
Quarter: 2018Q4

REPORT INFORMATION
  Report Type: Spontaneous
  Country: US (occurrence: US)
  Receive Date: 20181108
  Receipt Date: 20181108
  Transmission Date: 20190205
  Serious: Yes (Death)
  Sender: FDA-Public Use
  Company Number: None

PATIENT
  Age: 74 Year
  Sex: Male

DRUGS (9)
  1. ACETAMIN [Concomitant]
     Active Substance: ACETAMINOPHEN
  2. HYOSCYAMINE. [Concomitant]
     Active Substance: HYOSCYAMINE
  3. TARCEVA [Suspect]
     Active Substance: ERLOTINIB HYDROCHLORIDE
     Indication: LUNG NEOPLASM MALIGNANT
     Route: 048
     Dates: start: 20180822
  4. MORPHINE SUL [Concomitant]
     Active Substance: MORPHINE SULFATE
  5. HALOPERIDOL. [Concomitant]
     Active Substance: HALOPERIDOL
  6. ONDANSETRON [Concomitant]
     Active Substance: ONDANSETRON
  7. LORAZEPAM. [Concomitant]
     Active Substance: LORAZEPAM
  8. PREDNISONE. [Concomitant]
     Active Substance: PREDNISONE
  9. CEPHALEXIN. [Concomitant]
     Active Substance: CEPHALEXIN

REACTIONS (1)
  - Death [None]

NARRATIVE: CASE EVENT DATE: 20181103
